FAERS Safety Report 5420303-1 (Version None)
Quarter: 2007Q3

REPORT INFORMATION
  Report Type: 
  Country: None (occurrence: None)
  Receive Date: 20070820
  Receipt Date: 20070814
  Transmission Date: 20080115
  Serious: Yes (Hospitalization, Other)
  Sender: FDA-Public Use
  Company Number: US-MERCK-0606USA05714

PATIENT
  Age: 69 Year
  Sex: Female
  Weight: 54 kg

DRUGS (3)
  1. FOSAMAX [Suspect]
     Indication: OSTEOPENIA
     Route: 048
     Dates: start: 20030129, end: 20060725
  2. FOSAMAX [Suspect]
     Indication: OSTEOPOROSIS
     Route: 048
     Dates: start: 20030129, end: 20060725
  3. CLIMARA [Concomitant]
     Route: 065
     Dates: start: 20040405

REACTIONS (4)
  - CYSTOCELE [None]
  - OSTEONECROSIS [None]
  - RECTOCELE [None]
  - UTERINE PROLAPSE [None]
